FAERS Safety Report 20448344 (Version 2)
Quarter: 2022Q1

REPORT INFORMATION
  Report Type: Spontaneous
  Country: SE (occurrence: SE)
  Receive Date: 20220209
  Receipt Date: 20220221
  Transmission Date: 20220423
  Serious: Yes (Death)
  Sender: FDA-Public Use
  Company Number: SE-NOVARTISPH-NVSC2022SE027647

PATIENT
  Age: 70 Year
  Sex: Male

DRUGS (2)
  1. ENALAPRIL [Suspect]
     Active Substance: ENALAPRIL
     Indication: Product used for unknown indication
     Dosage: 5 MG
     Route: 065
  2. CRESEMBA [Suspect]
     Active Substance: ISAVUCONAZONIUM SULFATE
     Indication: Fungal infection
     Dosage: UNK
     Route: 065
     Dates: start: 20171003

REACTIONS (4)
  - Death [Fatal]
  - Cardiovascular disorder [Fatal]
  - Blood creatinine increased [Unknown]
  - Off label use [Unknown]
